FAERS Safety Report 11634851 (Version 1)
Quarter: 2015Q4

REPORT INFORMATION
  Report Type: Spontaneous
  Country: US (occurrence: US)
  Receive Date: 20151015
  Receipt Date: 20151015
  Transmission Date: 20160304
  Serious: No
  Sender: FDA-Public Use
  Company Number: US-TAKEDA-2015TUS013946

PATIENT
  Sex: Female
  Weight: 70.3 kg

DRUGS (1)
  1. BRINTELLIX [Suspect]
     Active Substance: VORTIOXETINE HYDROBROMIDE
     Indication: FIBROMYALGIA
     Dosage: QD
     Route: 048
     Dates: start: 20151001

REACTIONS (1)
  - Drug prescribing error [Unknown]
